FAERS Safety Report 5121744-2 (Version None)
Quarter: 2006Q4

REPORT INFORMATION
  Report Type: 
  Country: None (occurrence: None)
  Receive Date: 20061003
  Receipt Date: 20060929
  Transmission Date: 20070319
  Serious: Yes (Hospitalization)
  Sender: FDA-Public Use
  Company Number: 225996

PATIENT
  Age: 66 Year
  Sex: Male
  Weight: 105 kg

DRUGS (4)
  1. MABTHERA(RITUXIMAB) CONC FOR SOLUTION FOR INFUSION [Suspect]
     Indication: B-CELL LYMPHOMA
     Dosage: INTRAVENOUS
     Route: 042
     Dates: start: 20060308, end: 20060531
  2. ADRIAM (DOXORUBICIN/DOXORUBICIN HYDROCHLORIDE) [Suspect]
     Indication: B-CELL LYMPHOMA
     Dosage: 100 MG, INTRAVENOUS
     Route: 042
     Dates: start: 20060308, end: 20060531
  3. CYCLOPHOSPHAMIDE [Suspect]
     Indication: B-CELL LYMPHOMA
     Dosage: 150 MG, INTRAVENOUS
     Route: 042
     Dates: start: 20060308, end: 20060531
  4. ONCOVIN [Suspect]
     Indication: B-CELL LYMPHOMA
     Dosage: 2 MG, INTRAVENOUS
     Route: 042
     Dates: start: 20060308, end: 20060531

REACTIONS (1)
  - CEREBROVASCULAR ACCIDENT [None]
